FAERS Safety Report 6107227-1 (Version None)
Quarter: 2009Q1

REPORT INFORMATION
  Report Type: 
  Country: None (occurrence: None)
  Receive Date: 20090305
  Receipt Date: 20090305
  Transmission Date: 20090719
  Serious: Yes (Life-Threatening, Hospitalization, Disabling, Congenital Anomaly, Other)
  Sender: FDA-Public Use
  Company Number: None

PATIENT
  Age: 49 Year
  Sex: Female
  Weight: 77.1115 kg

DRUGS (1)
  1. NICODERM [Suspect]
     Indication: SMOKING CESSATION THERAPY
     Dosage: 3 TO 5 DAYS IN RADIATION PATCH ONCE A DAY
     Route: 062
     Dates: start: 20071220, end: 20071229

REACTIONS (14)
  - BALANCE DISORDER [None]
  - BLOOD ALUMINIUM ABNORMAL [None]
  - BLOOD LACTIC ACID INCREASED [None]
  - CENTRAL NERVOUS SYSTEM LESION [None]
  - CEREBROVASCULAR DISORDER [None]
  - GOITRE [None]
  - JOINT SWELLING [None]
  - LYMPHOEDEMA [None]
  - MYALGIA [None]
  - NERVOUS SYSTEM DISORDER [None]
  - OEDEMA PERIPHERAL [None]
  - PITTING OEDEMA [None]
  - SKIN HYPERTROPHY [None]
  - SPEECH DISORDER [None]
